FAERS Safety Report 15811002 (Version 1)
Quarter: 2019Q1

REPORT INFORMATION
  Report Type: Spontaneous
  Country: US (occurrence: US)
  Receive Date: 20190111
  Receipt Date: 20190111
  Transmission Date: 20190417
  Serious: No
  Sender: FDA-Public Use
  Company Number: US-TEVA-2018-US-990777

PATIENT
  Sex: Female

DRUGS (1)
  1. AMLODIPINE W/VALSARTAN TEVA [Suspect]
     Active Substance: AMLODIPINE\VALSARTAN
     Dosage: 5 MG/320 MG

REACTIONS (4)
  - Dizziness [Unknown]
  - Memory impairment [Unknown]
  - Back pain [Unknown]
  - Gastrooesophageal reflux disease [Unknown]
